FAERS Safety Report 10331768 (Version 2)
Quarter: 2014Q4

REPORT INFORMATION
  Report Type: Spontaneous
  Country: US (occurrence: US)
  Receive Date: 20140722
  Receipt Date: 20141114
  Transmission Date: 20150528
  Serious: Yes (Hospitalization, Other)
  Sender: FDA-Public Use
  Company Number: US-BAYER-2014-108594

PATIENT
  Age: 29 Year
  Sex: Female
  Weight: 56.69 kg

DRUGS (2)
  1. MIRENA [Suspect]
     Active Substance: LEVONORGESTREL
     Indication: CONTRACEPTION
     Dosage: 20 MCG/24HR, CONT
     Route: 015
     Dates: start: 20090604, end: 20131011
  2. MIRENA [Suspect]
     Active Substance: LEVONORGESTREL
     Indication: MENORRHAGIA

REACTIONS (12)
  - Device dislocation [None]
  - Depression [None]
  - Hyperthyroidism [None]
  - Device issue [None]
  - Uterine perforation [None]
  - Injury [None]
  - Emotional distress [None]
  - Pain [None]
  - Drug ineffective [None]
  - Malaise [None]
  - Stress [None]
  - Pregnancy with contraceptive device [None]

NARRATIVE: CASE EVENT DATE: 2010
